FAERS Safety Report 7806480-3 (Version None)
Quarter: 2011Q4

REPORT INFORMATION
  Report Type: 
  Country: None (occurrence: None)
  Receive Date: 20111007
  Receipt Date: 20111007
  Transmission Date: 20120403
  Serious: No
  Sender: FDA-Public Use
  Company Number: None

PATIENT
  Sex: Female

DRUGS (1)
  1. SIMPONI [Suspect]
     Indication: RHEUMATOID ARTHRITIS
     Dosage: 50MG QMN SQ
     Route: 058
     Dates: start: 20100907

REACTIONS (3)
  - VISUAL IMPAIRMENT [None]
  - AURICULAR SWELLING [None]
  - INNER EAR DISORDER [None]
